FAERS Safety Report 7137004-4 (Version None)
Quarter: 2010Q4

REPORT INFORMATION
  Report Type: 
  Country: None (occurrence: None)
  Receive Date: 20101119
  Receipt Date: 20101111
  Transmission Date: 20110411
  Serious: Yes (Other)
  Sender: FDA-Public Use
  Company Number: 2010SP058192

PATIENT
  Age: 73 Year
  Sex: Male
  Weight: 70 kg

DRUGS (11)
  1. REMERON [Suspect]
     Indication: DEPRESSION
     Dosage: 15 MG;QD;PO ; 7.5 MG;QD;PO
     Route: 048
     Dates: start: 20101008, end: 20101009
  2. REMERON [Suspect]
     Indication: INSOMNIA
     Dosage: 15 MG;QD;PO ; 7.5 MG;QD;PO
     Route: 048
     Dates: start: 20101008, end: 20101009
  3. REMERON [Suspect]
     Indication: DEPRESSION
     Dosage: 15 MG;QD;PO ; 7.5 MG;QD;PO
     Route: 048
     Dates: start: 20101010, end: 20101011
  4. REMERON [Suspect]
     Indication: INSOMNIA
     Dosage: 15 MG;QD;PO ; 7.5 MG;QD;PO
     Route: 048
     Dates: start: 20101010, end: 20101011
  5. TICLOPIDINE HCL [Suspect]
     Indication: PRODUCT USED FOR UNKNOWN INDICATION
  6. ASPIRIN [Suspect]
     Indication: PRODUCT USED FOR UNKNOWN INDICATION
  7. CARVEDILOL [Suspect]
     Indication: PRODUCT USED FOR UNKNOWN INDICATION
  8. MICARDIS [Suspect]
     Indication: PRODUCT USED FOR UNKNOWN INDICATION
  9. ADALAT [Suspect]
  10. MYSLEE [Concomitant]
  11. AMOBAN [Concomitant]

REACTIONS (2)
  - AMNESIA [None]
  - SOMNAMBULISM [None]
